FAERS Safety Report 5153011-5 (Version None)
Quarter: 2006Q4

REPORT INFORMATION
  Report Type: 
  Country: None (occurrence: None)
  Receive Date: 20061117
  Receipt Date: 20061107
  Transmission Date: 20070319
  Serious: Yes (Death, Life-Threatening, Hospitalization)
  Sender: FDA-Public Use
  Company Number: NSADSS2003000555

PATIENT
  Sex: Male
  Weight: 65.32 kg

DRUGS (7)
  1. REMICADE [Suspect]
     Route: 041
  2. REMICADE [Suspect]
     Route: 041
  3. REMICADE [Suspect]
     Route: 041
  4. REMICADE [Suspect]
     Indication: COLITIS ULCERATIVE
     Route: 041
  5. 6-MP [Concomitant]
  6. ASACOL [Concomitant]
  7. PREDNISONE TAB [Concomitant]
     Route: 048

REACTIONS (9)
  - CHOLANGITIS [None]
  - CHOLECYSTITIS [None]
  - HEPATOSPLENOMEGALY [None]
  - INTESTINAL ISCHAEMIA [None]
  - LYMPHOMA [None]
  - MALAISE [None]
  - NATURAL KILLER-CELL LEUKAEMIA [None]
  - PYREXIA [None]
  - WHITE BLOOD CELL COUNT INCREASED [None]
